FAERS Safety Report 8844135 (Version 1)
Quarter: 2012Q4

REPORT INFORMATION
  Report Type: 
  Country: US (occurrence: US)
  Receive Date: 20121016
  Receipt Date: 20121016
  Transmission Date: 20130627
  Serious: No
  Sender: FDA-Public Use
  Company Number: US-BAYER-2012-104944

PATIENT
  Age: 65 Year
  Sex: Female
  Weight: 68.03 kg

DRUGS (4)
  1. ALEVE CAPLET/TABLET,MIDOL EXTENDED RELIEF CAPLET [Suspect]
     Indication: BACK PAIN
     Dosage: 1 DF, HS
     Dates: start: 20120926
  2. XANAX [Concomitant]
  3. ALPRAZOLAM [Concomitant]
  4. IBUPROFEN [Concomitant]

REACTIONS (3)
  - Insomnia [Recovered/Resolved]
  - Insomnia [Recovered/Resolved]
  - Insomnia [Recovered/Resolved]
